FAERS Safety Report 10034434 (Version 1)
Quarter: 2014Q1

REPORT INFORMATION
  Report Type: Spontaneous
  Country: US (occurrence: None)
  Receive Date: 20140321
  Receipt Date: 20140321
  Transmission Date: 20141002
  Serious: Yes (Hospitalization)
  Sender: FDA-Public Use
  Company Number: UTC-045935

PATIENT
  Age: 36 Year
  Sex: Female
  Weight: 64.2 kg

DRUGS (2)
  1. REMODULIN [Suspect]
     Indication: PULMONARY ARTERIAL HYPERTENSION
     Dosage: 0.03 UG/KG, 1 IN 1 MIN
     Route: 041
     Dates: start: 20140117
  2. XARELTO [Concomitant]

REACTIONS (3)
  - Medical device complication [None]
  - Device dislocation [None]
  - Drug dose omission [None]
